FAERS Safety Report 9595287 (Version 2)
Quarter: 2013Q4

REPORT INFORMATION
  Report Type: Spontaneous
  Country: US (occurrence: US)
  Receive Date: 20131004
  Receipt Date: 20131004
  Transmission Date: 20140711
  Serious: No
  Sender: FDA-Public Use
  Company Number: US-PURDUE-USA-2012-0091745

PATIENT
  Age: 46 Year
  Sex: Male
  Weight: 94.33 kg

DRUGS (9)
  1. BUTRANS [Suspect]
     Indication: NECK PAIN
     Dosage: 20 MCG, WEEKLY
     Route: 062
     Dates: start: 20120619
  2. BUTRANS [Suspect]
     Indication: BACK PAIN
  3. METHADONE [Concomitant]
     Indication: PRODUCT USED FOR UNKNOWN INDICATION
  4. HYDROCODONE [Concomitant]
     Indication: PRODUCT USED FOR UNKNOWN INDICATION
  5. SIMVASTAT [Concomitant]
     Indication: PRODUCT USED FOR UNKNOWN INDICATION
  6. CARVEDILOL [Concomitant]
     Indication: PRODUCT USED FOR UNKNOWN INDICATION
  7. LAVISA [Concomitant]
     Indication: PRODUCT USED FOR UNKNOWN INDICATION
  8. MODAFINIL [Concomitant]
     Indication: PRODUCT USED FOR UNKNOWN INDICATION
     Dosage: 100 MG, UNK
  9. KLONOPIN [Concomitant]
     Indication: PRODUCT USED FOR UNKNOWN INDICATION
     Dosage: 1 MG, UNK

REACTIONS (8)
  - Drug withdrawal syndrome [Unknown]
  - Wrong technique in drug usage process [Unknown]
  - Application site discolouration [Unknown]
  - Application site pruritus [Unknown]
  - Drug effect decreased [Unknown]
  - Drug ineffective [Unknown]
  - Product adhesion issue [Unknown]
  - Application site rash [Recovering/Resolving]
